FAERS Safety Report 4618245-4 (Version None)
Quarter: 2005Q1

REPORT INFORMATION
  Report Type: 
  Country: None (occurrence: None)
  Receive Date: 20050323
  Receipt Date: 20050310
  Transmission Date: 20050727
  Serious: Yes (Death)
  Sender: FDA-Public Use
  Company Number: B0374236A

PATIENT
  Age: 63 Year
  Sex: Male

DRUGS (12)
  1. ALKERAN [Suspect]
     Indication: NON-HODGKIN'S LYMPHOMA
  2. DEXAMETHASONE (FORMULATION UNKNOWN) (GENERIC)   (DEXAMETHASONE) [Suspect]
     Indication: NON-HODGKIN'S LYMPHOMA
  3. CYCLOPHOSPHAMIDE [Suspect]
     Indication: NON-HODGKIN'S LYMPHOMA
  4. DOXORUBICIN HCL [Suspect]
     Indication: NON-HODGKIN'S LYMPHOMA
  5. VINCRISTINE [Suspect]
     Indication: NON-HODGKIN'S LYMPHOMA
  6. PREDNISONE [Suspect]
     Indication: NON-HODGKIN'S LYMPHOMA
  7. LOMUSTINE (FORMULATION UNKNOWN) (LOMUSTINE) [Suspect]
     Indication: NON-HODGKIN'S LYMPHOMA
  8. ETOPOSIDE (FORMUALTION UNKNOWN) (ETOPOSIDE) [Suspect]
     Indication: NON-HODGKIN'S LYMPHOMA
  9. CYTARABINE [Suspect]
     Indication: NON-HODGKIN'S LYMPHOMA
  10. RITUXIMAB (FORMULATION UNKNOWN) (RITUXIMAB) [Suspect]
     Indication: NON-HODGKIN'S LYMPHOMA
  11. CYTARABINE [Suspect]
     Indication: NON-HODGKIN'S LYMPHOMA
  12. CISPLATIN [Suspect]
     Indication: NON-HODGKIN'S LYMPHOMA

REACTIONS (1)
  - REFRACTORY ANAEMIA [None]
